FAERS Safety Report 20126708 (Version 6)
Quarter: 2022Q1

REPORT INFORMATION
  Report Type: Spontaneous
  Country: US (occurrence: US)
  Receive Date: 20211129
  Receipt Date: 20220303
  Transmission Date: 20220423
  Serious: Yes (Hospitalization)
  Sender: FDA-Public Use
  Company Number: US-CELGENE-USA-20211106630

PATIENT
  Age: 81 Year
  Sex: Male
  Weight: 88.6 kg

DRUGS (8)
  1. AZACITIDINE [Suspect]
     Active Substance: AZACITIDINE
     Indication: Myelodysplastic syndrome
     Route: 041
     Dates: start: 20210914
  2. VENETOCLAX [Suspect]
     Active Substance: VENETOCLAX
     Indication: Myelodysplastic syndrome
     Route: 048
  3. ATORVASTATIN CALCIUM [Concomitant]
     Active Substance: ATORVASTATIN CALCIUM
     Indication: Hyperlipidaemia
     Dosage: 10 MILLIGRAM
     Route: 048
     Dates: start: 2016
  4. CHOLECALCIFEROL [Concomitant]
     Active Substance: CHOLECALCIFEROL
     Indication: Supplementation therapy
     Route: 048
     Dates: start: 2011
  5. FENOFIBRATE [Concomitant]
     Active Substance: FENOFIBRATE
     Indication: Hyperlipidaemia
     Dosage: 145 MILLIGRAM
     Route: 048
     Dates: start: 2017
  6. LISINOPRIL [Concomitant]
     Active Substance: LISINOPRIL
     Indication: Hypertension
     Dosage: 20 MILLIGRAM
     Route: 048
     Dates: start: 2001
  7. VITAMINS [Concomitant]
     Active Substance: VITAMINS
     Indication: Supplementation therapy
     Route: 048
     Dates: start: 2001
  8. LEVOFLOXACIN [Concomitant]
     Active Substance: LEVOFLOXACIN
     Indication: Neutrophil count decreased
     Dosage: 500 MILLIGRAM
     Route: 048
     Dates: start: 20211011

REACTIONS (2)
  - Abdominal wall haematoma [Not Recovered/Not Resolved]
  - Cardiac failure congestive [Not Recovered/Not Resolved]

NARRATIVE: CASE EVENT DATE: 20211108
